FAERS Safety Report 25289842 (Version 1)
Quarter: 2025Q2

REPORT INFORMATION
  Report Type: Spontaneous
  Country: US (occurrence: US)
  Receive Date: 20250509
  Receipt Date: 20250509
  Transmission Date: 20250717
  Serious: Yes (Hospitalization, Other)
  Sender: PFIZER
  Company Number: US-PFIZER INC-PV202500053319

PATIENT
  Age: 62 Year
  Sex: Female
  Weight: 96.6 kg

DRUGS (25)
  1. ZITHROMAX [Suspect]
     Active Substance: AZITHROMYCIN DIHYDRATE
  2. TYVASO [Suspect]
     Active Substance: TREPROSTINIL
     Indication: Pulmonary arterial hypertension
     Route: 055
     Dates: start: 20231129, end: 202501
  3. TYVASO [Suspect]
     Active Substance: TREPROSTINIL
     Indication: Pulmonary arterial hypertension
     Route: 055
     Dates: start: 202410
  4. TYVASO [Suspect]
     Active Substance: TREPROSTINIL
     Dosage: 18 UG (3 BREATHS), FOUR TIMES A DAY (QID) VIA INHALATION (IH) ROUTE
     Route: 055
     Dates: start: 202410, end: 2024
  5. TYVASO [Suspect]
     Active Substance: TREPROSTINIL
     Dosage: 6 UG (1 BREATH), QID
     Route: 055
     Dates: start: 2024, end: 2024
  6. TYVASO [Suspect]
     Active Substance: TREPROSTINIL
     Dosage: 36 UG (6 BREATHS), QID
     Route: 055
     Dates: start: 2024
  7. TYVASO [Suspect]
     Active Substance: TREPROSTINIL
     Dosage: 24 UG (4 BREATHS), QID
     Route: 055
  8. TYVASO DPI [Suspect]
     Active Substance: TREPROSTINIL
     Indication: Pulmonary arterial hypertension
     Dosage: 16 UG, 4X/DAY
     Dates: start: 202501
  9. TYVASO DPI [Suspect]
     Active Substance: TREPROSTINIL
     Dosage: 64 UG, 4X/DAY
  10. TYVASO DPI [Suspect]
     Active Substance: TREPROSTINIL
     Dosage: 32 UG, 4X/DAY
  11. ZYRTEC [Suspect]
     Active Substance: CETIRIZINE HYDROCHLORIDE
  12. COVID-19 VACCINE NOS [Suspect]
     Active Substance: COVID-19 VACCINE
     Indication: COVID-19 immunisation
  13. MORPHINE SULFATE [Concomitant]
     Active Substance: MORPHINE SULFATE
  14. XIFAXAN [Concomitant]
     Active Substance: RIFAXIMIN
  15. BREO ELLIPTA [Concomitant]
     Active Substance: FLUTICASONE FUROATE\VILANTEROL TRIFENATATE
  16. PROAIR HFA [Concomitant]
     Active Substance: ALBUTEROL SULFATE
  17. SPIRONOLACTONE [Concomitant]
     Active Substance: SPIRONOLACTONE
  18. ACETAMINOPHEN AND CODEINE [Concomitant]
     Active Substance: ACETAMINOPHEN\CODEINE PHOSPHATE
  19. AMBRISENTAN [Concomitant]
     Active Substance: AMBRISENTAN
     Dates: start: 20241127
  20. NYSTATIN [Concomitant]
     Active Substance: NYSTATIN
     Dates: start: 2025
  21. COBAMAMIDE [Concomitant]
     Active Substance: COBAMAMIDE
     Dosage: UNK UNK, MONTHLY
  22. COBAMAMIDE [Concomitant]
     Active Substance: COBAMAMIDE
  23. POTASSIUM [Concomitant]
     Active Substance: POTASSIUM
  24. ZINC [Concomitant]
     Active Substance: ZINC
  25. MIDODRINE HYDROCHLORIDE [Concomitant]
     Active Substance: MIDODRINE HYDROCHLORIDE

REACTIONS (50)
  - Pneumonia influenzal [Unknown]
  - Chest pain [Unknown]
  - Hypervolaemia [Unknown]
  - Fluid retention [Unknown]
  - Fall [Recovered/Resolved with Sequelae]
  - Nasopharyngitis [Unknown]
  - Fracture [Recovered/Resolved]
  - Hepatic neoplasm [Unknown]
  - Lower respiratory tract infection [Unknown]
  - Hip fracture [Unknown]
  - Vomiting [Recovered/Resolved]
  - Respiratory tract congestion [Unknown]
  - Headache [Unknown]
  - Chest discomfort [Unknown]
  - Diarrhoea [Unknown]
  - Infection [Unknown]
  - Blood pressure increased [Unknown]
  - Fatigue [Unknown]
  - Blood pressure fluctuation [Unknown]
  - Oxygen saturation decreased [Unknown]
  - Feeling abnormal [Unknown]
  - Condition aggravated [Not Recovered/Not Resolved]
  - Dizziness [Not Recovered/Not Resolved]
  - Dehydration [Unknown]
  - Swelling [Unknown]
  - Peripheral swelling [Unknown]
  - Platelet count decreased [Unknown]
  - Decreased immune responsiveness [Unknown]
  - Asthma [Unknown]
  - Head discomfort [Unknown]
  - Hypotension [Unknown]
  - Hypoaesthesia [Unknown]
  - Throat irritation [Unknown]
  - Oral candidiasis [Unknown]
  - Pruritus [Unknown]
  - Weight decreased [Unknown]
  - Asthenia [Unknown]
  - Food poisoning [Unknown]
  - Irritability [Unknown]
  - Seasonal allergy [Unknown]
  - Sinusitis [Unknown]
  - Oropharyngeal pain [Unknown]
  - Epistaxis [Unknown]
  - Dysphonia [Not Recovered/Not Resolved]
  - Throat tightness [Unknown]
  - Thirst [Unknown]
  - Cough [Unknown]
  - Chest discomfort [Unknown]
  - Illness [Unknown]
  - Drug ineffective [Unknown]

NARRATIVE: CASE EVENT DATE: 20241002
